FAERS Safety Report 6551210-9 (Version None)
Quarter: 2010Q1

REPORT INFORMATION
  Report Type: 
  Country: None (occurrence: None)
  Receive Date: 20100121
  Receipt Date: 20100106
  Transmission Date: 20100710
  Serious: Yes (Other)
  Sender: FDA-Public Use
  Company Number: 004479

PATIENT
  Age: 67 Year
  Sex: Male

DRUGS (6)
  1. PREDNISOLONE [Suspect]
     Dosage: (AS NEEDED)
     Dates: end: 20080417
  2. ALENDRONIC ACID (ALENDRONIC ACID) [Suspect]
     Dates: start: 20020913
  3. AZATHIOPRINE [Suspect]
     Dates: start: 20020913
  4. POLYETHYLENE GLYCOL 3350 [Suspect]
     Indication: CONSTIPATION
  5. OMEPRAZOLE [Suspect]
     Dosage: (ORAL)
     Route: 048
     Dates: start: 20020913
  6. TEGRETOL [Suspect]
     Dosage: (ORAL)
     Route: 048
     Dates: start: 20030108

REACTIONS (2)
  - CEREBROVASCULAR ACCIDENT [None]
  - CIRCULATORY COLLAPSE [None]
